FAERS Safety Report 5705606-5 (Version None)
Quarter: 2008Q2

REPORT INFORMATION
  Report Type: 
  Country: None (occurrence: None)
  Receive Date: 20080411
  Receipt Date: 20080402
  Transmission Date: 20081010
  Serious: Yes (Other)
  Sender: FDA-Public Use
  Company Number: 2008SP006337

PATIENT
  Age: 82 Year
  Sex: Female

DRUGS (6)
  1. NASONEX [Suspect]
     Indication: DRUG USE FOR UNKNOWN INDICATION
     Dosage: 150 MCG; TID; INH
     Route: 055
     Dates: start: 20071122, end: 20071127
  2. SINTROM [Suspect]
     Indication: DRUG USE FOR UNKNOWN INDICATION
     Dosage: ; PO
     Route: 048
     Dates: start: 20000101, end: 20071127
  3. FLUOROMETOLONE (NO PREF. NAME) [Suspect]
     Indication: DRUG USE FOR UNKNOWN INDICATION
     Dosage: 4 DF; BID; OPH
     Route: 047
     Dates: start: 20071102, end: 20071127
  4. TOBREX /00304201/ (CON.) [Concomitant]
  5. COROPRESS (CON.) [Concomitant]
  6. NITRODERM MATRIX (CON.) [Concomitant]

REACTIONS (3)
  - COAGULOPATHY [None]
  - DRUG INTERACTION [None]
  - INTERNATIONAL NORMALISED RATIO ABNORMAL [None]
